FAERS Safety Report 9637108 (Version 1)
Quarter: 2013Q4

REPORT INFORMATION
  Report Type: Spontaneous
  Country: US (occurrence: US)
  Receive Date: 20131022
  Receipt Date: 20131022
  Transmission Date: 20140711
  Serious: No
  Sender: FDA-Public Use
  Company Number: US-BAYER-2013-127826

PATIENT
  Age: 46 Year
  Sex: Female

DRUGS (1)
  1. BETASERON [Suspect]
     Indication: MULTIPLE SCLEROSIS
     Dosage: 0.25 MG, QOD
     Dates: start: 2001

REACTIONS (5)
  - Rash [None]
  - Paraesthesia [None]
  - Asthenia [None]
  - Musculoskeletal pain [None]
  - Urticaria [None]
